FAERS Safety Report 25267094 (Version 1)
Quarter: 2025Q2

REPORT INFORMATION
  Report Type: Spontaneous
  Country: MX (occurrence: MX)
  Receive Date: 20250505
  Receipt Date: 20250505
  Transmission Date: 20250717
  Serious: Yes (Death, Life-Threatening, Hospitalization, Other)
  Sender: AMGEN
  Company Number: MX-AMGEN-MEXSP2025086105

PATIENT

DRUGS (2)
  1. BLINATUMOMAB [Suspect]
     Active Substance: BLINATUMOMAB
     Indication: Acute lymphocytic leukaemia
     Route: 065
  2. CYCLOPHOSPHAMIDE\CYTARABINE\DEXAMETHASONE\DOXORUBICIN\METHOTREXATE\VIN [Suspect]
     Active Substance: CYCLOPHOSPHAMIDE\CYTARABINE\DEXAMETHASONE\DOXORUBICIN\METHOTREXATE\VINCRISTINE
     Indication: Acute lymphocytic leukaemia
     Route: 065

REACTIONS (7)
  - Death [Fatal]
  - Hepatotoxicity [Unknown]
  - Acute lymphocytic leukaemia recurrent [Unknown]
  - Ill-defined disorder [Unknown]
  - Febrile neutropenia [Unknown]
  - Septic shock [Unknown]
  - Pancreatitis [Unknown]
